FAERS Safety Report 6868707-4 (Version None)
Quarter: 2010Q3

REPORT INFORMATION
  Report Type: 
  Country: None (occurrence: None)
  Receive Date: 20100722
  Receipt Date: 20080605
  Transmission Date: 20110219
  Serious: No
  Sender: FDA-Public Use
  Company Number: US-PFIZER INC-2008048786

PATIENT
  Sex: Female
  Weight: 60.78 kg

DRUGS (5)
  1. CHANTIX [Suspect]
     Indication: SMOKING CESSATION THERAPY
     Dates: start: 20080526
  2. ZANTAC [Concomitant]
  3. LAXATIVES [Concomitant]
  4. ALLERGY MEDICATION [Concomitant]
  5. CARDIOVASCULAR SYSTEM DRUGS [Concomitant]

REACTIONS (2)
  - GASTRIC DISORDER [None]
  - HYPERPHAGIA [None]
